FAERS Safety Report 8625440-6 (Version None)
Quarter: 2012Q3

REPORT INFORMATION
  Report Type: 
  Country: None (occurrence: None)
  Receive Date: 20120827
  Receipt Date: 20120824
  Transmission Date: 20120928
  Serious: No
  Sender: FDA-Public Use
  Company Number: US-TEVA-354239USA

PATIENT
  Sex: Female
  Weight: 47.67 kg

DRUGS (1)
  1. PLAN B ONE-STEP [Suspect]
     Indication: POST COITAL CONTRACEPTION
     Dosage: 1.5 MILLIGRAM DAILY;
     Route: 048
     Dates: start: 20120810, end: 20120810

REACTIONS (5)
  - ABDOMINAL DISTENSION [None]
  - PAIN IN EXTREMITY [None]
  - HEADACHE [None]
  - BACK PAIN [None]
  - NAUSEA [None]
